FAERS Safety Report 9846652 (Version 1)
Quarter: 2014Q1

REPORT INFORMATION
  Report Type: Spontaneous
  Country: DK (occurrence: DK)
  Receive Date: 20140127
  Receipt Date: 20140127
  Transmission Date: 20141002
  Serious: Yes (Life-Threatening, Hospitalization, Disabling, Other)
  Sender: FDA-Public Use
  Company Number: DK-GLAXOSMITHKLINE-B0963420A

PATIENT
  Age: 6 Year
  Sex: Male

DRUGS (22)
  1. ATRIANCE [Suspect]
     Indication: T-CELL LYMPHOMA REFRACTORY
     Route: 042
     Dates: start: 20130704, end: 20130816
  2. ETOPOSID [Concomitant]
     Indication: T-CELL LYMPHOMA REFRACTORY
     Route: 065
     Dates: start: 20130704, end: 20130708
  3. CYCLOPHOSPHAMIDE [Concomitant]
     Indication: T-CELL LYMPHOMA REFRACTORY
     Route: 065
     Dates: start: 20130104, end: 20130108
  4. INNOHEP [Concomitant]
     Indication: THROMBOSIS PROPHYLAXIS
     Route: 065
     Dates: start: 20130104
  5. CEFUROXIM [Concomitant]
     Indication: ANTIBIOTIC PROPHYLAXIS
     Route: 065
     Dates: start: 20130103
  6. DIFLUCAN [Concomitant]
     Indication: ANTIFUNGAL PROPHYLAXIS
     Route: 065
     Dates: start: 20130703
  7. CATAPRESAN [Concomitant]
     Indication: PRODUCT USED FOR UNKNOWN INDICATION
     Route: 065
     Dates: start: 201307
  8. FENTANYL [Concomitant]
     Indication: SEDATION
     Route: 065
     Dates: start: 20130703, end: 20130712
  9. DORMICUM [Concomitant]
     Indication: SEDATION
     Route: 065
     Dates: start: 20130703, end: 20130712
  10. GRANISETRON [Concomitant]
     Indication: ADVERSE DRUG REACTION
     Route: 065
  11. PARACETAMOL [Concomitant]
     Indication: PRODUCT USED FOR UNKNOWN INDICATION
     Route: 065
  12. SOLUMEDROL [Concomitant]
     Indication: PRODUCT USED FOR UNKNOWN INDICATION
     Dosage: 6MG PER DAY
     Route: 042
     Dates: start: 20130713, end: 20130714
  13. THYMOGLOBULINE [Concomitant]
     Indication: IMMUNOSUPPRESSION
     Route: 065
     Dates: start: 20130829
  14. CLOFARABINE [Concomitant]
     Indication: IMMUNOSUPPRESSION
     Route: 065
     Dates: start: 20130829
  15. THIOTEPA [Concomitant]
     Indication: IMMUNOSUPPRESSION
     Route: 065
     Dates: start: 20130829
  16. ALKERAN [Concomitant]
     Indication: IMMUNOSUPPRESSION
     Route: 065
     Dates: start: 20130829
  17. CELLCEPT [Concomitant]
     Indication: GRAFT VERSUS HOST DISEASE
     Route: 065
  18. SANDIMMUN [Concomitant]
     Indication: GRAFT VERSUS HOST DISEASE
     Route: 065
  19. PREDNISOLONE [Concomitant]
     Indication: PRODUCT USED FOR UNKNOWN INDICATION
     Route: 065
     Dates: start: 20131108
  20. HYDROCORTISONE [Concomitant]
     Indication: PRODUCT USED FOR UNKNOWN INDICATION
     Route: 065
  21. NOXAFIL [Concomitant]
     Indication: ANTIFUNGAL PROPHYLAXIS
     Route: 065
  22. ACYCLOVIR [Concomitant]
     Indication: ANTIVIRAL TREATMENT
     Route: 065

REACTIONS (11)
  - Neurotoxicity [Recovered/Resolved]
  - Neurotoxicity [Recovering/Resolving]
  - Depressed level of consciousness [Recovering/Resolving]
  - Myelitis transverse [Recovering/Resolving]
  - Neuropathy peripheral [Recovered/Resolved]
  - Respiratory disorder [Recovering/Resolving]
  - Monoparesis [Recovered/Resolved]
  - Aphasia [Recovering/Resolving]
  - Muscular weakness [Not Recovered/Not Resolved]
  - Nervous system disorder [Recovered/Resolved]
  - Walking disability [Not Recovered/Not Resolved]
